FAERS Safety Report 6373870-8 (Version None)
Quarter: 2009Q3

REPORT INFORMATION
  Report Type: 
  Country: None (occurrence: None)
  Receive Date: 20090924
  Receipt Date: 20090511
  Transmission Date: 20100115
  Serious: Yes (Other)
  Sender: FDA-Public Use
  Company Number: US-ASTRAZENECA-2009UW11967

PATIENT
  Age: 47 Year
  Sex: Male
  Weight: 95.3 kg

DRUGS (6)
  1. SEROQUEL [Suspect]
     Indication: MENTAL DISORDER
     Dosage: 25 MG, 200 MG
     Route: 048
     Dates: start: 20050801, end: 20061201
  2. PROZAC [Concomitant]
     Dates: start: 19960101
  3. TRICOR [Concomitant]
     Dates: start: 20080101
  4. LOVASTATIN [Concomitant]
     Dates: start: 20080101
  5. RISPERDAL [Concomitant]
     Dates: start: 20030101
  6. KLONOPIN [Concomitant]

REACTIONS (6)
  - ARTHRITIS [None]
  - BACK PAIN [None]
  - BLOOD CHOLESTEROL INCREASED [None]
  - BLOOD TRIGLYCERIDES INCREASED [None]
  - PANCREATITIS [None]
  - TYPE 2 DIABETES MELLITUS [None]
